FAERS Safety Report 5586709-5 (Version None)
Quarter: 2008Q1

REPORT INFORMATION
  Report Type: 
  Country: None (occurrence: None)
  Receive Date: 20080110
  Receipt Date: 20071018
  Transmission Date: 20080703
  Serious: No
  Sender: FDA-Public Use
  Company Number: US-BAYER-US-2007-039728

PATIENT
  Age: 27 Year
  Sex: Female
  Weight: 54 kg

DRUGS (2)
  1. YAZ [Suspect]
     Indication: PREMENSTRUAL SYNDROME
     Route: 048
     Dates: start: 20070701
  2. AMOXICILLIN [Suspect]
     Indication: EAR, NOSE AND THROAT EXAMINATION ABNORMAL
     Route: 048
     Dates: start: 20071011, end: 20071017

REACTIONS (3)
  - DRUG INEFFECTIVE [None]
  - IRRITABILITY [None]
  - MOOD SWINGS [None]
